FAERS Safety Report 18206625 (Version 1)
Quarter: 2020Q3

REPORT INFORMATION
  Report Type: Spontaneous
  Country: US (occurrence: US)
  Receive Date: 20200827
  Receipt Date: 20200827
  Transmission Date: 20201103
  Serious: No
  Sender: FDA-Public Use
  Company Number: None

PATIENT
  Age: 69 Year
  Sex: Male
  Weight: 109.2 kg

DRUGS (1)
  1. INFED [Suspect]
     Active Substance: IRON DEXTRAN
     Indication: IRON DEFICIENCY ANAEMIA
     Dosage: ?          OTHER FREQUENCY:ONCE;?
     Route: 041
     Dates: start: 20200813, end: 20200813

REACTIONS (6)
  - Arthralgia [None]
  - Flushing [None]
  - Dyspnoea [None]
  - Infusion related reaction [None]
  - Chest discomfort [None]
  - Groin pain [None]

NARRATIVE: CASE EVENT DATE: 20200813
